FAERS Safety Report 8491442-6 (Version None)
Quarter: 2012Q3

REPORT INFORMATION
  Report Type: 
  Country: None (occurrence: None)
  Receive Date: 20120706
  Receipt Date: 20120626
  Transmission Date: 20120928
  Serious: Yes (Hospitalization)
  Sender: FDA-Public Use
  Company Number: OM-SANOFI-AVENTIS-2012SA038076

PATIENT
  Sex: Female

DRUGS (4)
  1. ACETAMINOPHEN [Concomitant]
     Dosage: DOSE: 1 GR
     Route: 048
     Dates: start: 20111101, end: 20111104
  2. CEFUROXIME [Concomitant]
     Indication: ANTIBIOTIC THERAPY
     Route: 042
     Dates: start: 20111101, end: 20111104
  3. ACETAMINOPHEN [Concomitant]
     Dosage: DOSE: 1 GR
     Route: 048
     Dates: start: 20111101, end: 20111104
  4. ENOXAPARIN SODIUM [Suspect]
     Route: 065
     Dates: start: 20111102, end: 20111105

REACTIONS (4)
  - DEVICE RELATED INFECTION [None]
  - JOINT SWELLING [None]
  - PYREXIA [None]
  - ARTHRALGIA [None]
